FAERS Safety Report 8031821-4 (Version None)
Quarter: 2012Q1

REPORT INFORMATION
  Report Type: 
  Country: None (occurrence: None)
  Receive Date: 20120109
  Receipt Date: 20120106
  Transmission Date: 20120608
  Serious: Yes (Death, Hospitalization)
  Sender: FDA-Public Use
  Company Number: US-B.I. PHARMACEUTICALS,INC./RIDGEFIELD-2012-BP-00336BP

PATIENT
  Age: 80 Year
  Sex: Male

DRUGS (2)
  1. AMIODARONE HCL [Concomitant]
  2. PRADAXA [Suspect]
     Indication: ATRIAL FIBRILLATION
     Dosage: 300 MG
     Route: 048

REACTIONS (3)
  - RENAL FAILURE [None]
  - ISCHAEMIC CARDIOMYOPATHY [None]
  - SHOCK HAEMORRHAGIC [None]
